FAERS Safety Report 15363861 (Version 1)
Quarter: 2018Q3

REPORT INFORMATION
  Report Type: Spontaneous
  Country: US (occurrence: US)
  Receive Date: 20180831
  Receipt Date: 20180831
  Transmission Date: 20181010
  Serious: Yes (Hospitalization)
  Sender: FDA-Public Use
  Company Number: None

PATIENT
  Age: 57 Year
  Sex: Male

DRUGS (2)
  1. OCTREOTIDE 200MCG/ML MDV [Suspect]
     Active Substance: OCTREOTIDE
     Route: 058
  2. CHOLESTYRAM POW [Concomitant]

REACTIONS (1)
  - Therapy cessation [None]
